FAERS Safety Report 12714004 (Version 1)
Quarter: 2016Q3

REPORT INFORMATION
  Report Type: Spontaneous
  Country: DK (occurrence: DK)
  Receive Date: 20160905
  Receipt Date: 20160905
  Transmission Date: 20161109
  Serious: Yes (Life-Threatening, Other)
  Sender: FDA-Public Use
  Company Number: DK-BAUSCH-BL-2016-020880

PATIENT
  Age: 66 Year
  Sex: Female

DRUGS (1)
  1. GENTAMICIN. [Suspect]
     Active Substance: GENTAMICIN
     Indication: PRODUCT USED FOR UNKNOWN INDICATION
     Route: 042

REACTIONS (3)
  - Cardiac arrest [Recovered/Resolved]
  - Anaphylactic reaction [Unknown]
  - Cerebral infarction [Recovered/Resolved]
